FAERS Safety Report 7967065-1 (Version None)
Quarter: 2011Q4

REPORT INFORMATION
  Report Type: 
  Country: None (occurrence: None)
  Receive Date: 20111209
  Receipt Date: 20111130
  Transmission Date: 20120403
  Serious: Yes (Other)
  Sender: FDA-Public Use
  Company Number: US-JNJFOC-20111201170

PATIENT
  Sex: Female
  Weight: 61.24 kg

DRUGS (2)
  1. RISPERDAL [Suspect]
     Indication: MENTAL DISORDER
     Route: 048
     Dates: start: 20040101, end: 20080101
  2. RISPERDAL [Suspect]
     Dosage: 1 IN THE A.M. AND 1 IN THE P.M.
     Route: 048
     Dates: start: 20080101

REACTIONS (6)
  - MUSCLE SPASMS [None]
  - DIABETES MELLITUS [None]
  - CHEMICAL INJURY [None]
  - PRODUCT COLOUR ISSUE [None]
  - FEELING ABNORMAL [None]
  - NAIL GROWTH ABNORMAL [None]
